FAERS Safety Report 15924039 (Version 1)
Quarter: 2019Q1

REPORT INFORMATION
  Report Type: Spontaneous
  Country: US (occurrence: US)
  Receive Date: 20190206
  Receipt Date: 20190206
  Transmission Date: 20190417
  Serious: Yes (Other)
  Sender: FDA-Public Use
  Company Number: US-GLAXOSMITHKLINE-US2019017931

PATIENT
  Sex: Male

DRUGS (2)
  1. PREVACID [Suspect]
     Active Substance: LANSOPRAZOLE
     Indication: DYSPEPSIA
     Dosage: UNK
     Dates: start: 1998
  2. LANSOPRAZOLE. [Suspect]
     Active Substance: LANSOPRAZOLE
     Indication: DYSPEPSIA
     Dosage: UNK

REACTIONS (3)
  - Oesophageal haemorrhage [Unknown]
  - Adverse event [Unknown]
  - Incorrect product administration duration [Unknown]
